FAERS Safety Report 6383285-4 (Version None)
Quarter: 2009Q4

REPORT INFORMATION
  Report Type: 
  Country: None (occurrence: None)
  Receive Date: 20091001
  Receipt Date: 20090925
  Transmission Date: 20100525
  Serious: Yes (Other)
  Sender: FDA-Public Use
  Company Number: GB-RB-017262-09

PATIENT
  Age: 49 Year
  Sex: Male

DRUGS (4)
  1. SUBOXONE [Suspect]
     Route: 060
  2. SUBOXONE [Suspect]
     Route: 060
     Dates: start: 20090301
  3. SUBOXONE [Suspect]
     Route: 060
  4. DIAZEPAM [Concomitant]
     Indication: DRUG USE FOR UNKNOWN INDICATION
     Dosage: DOSE UNKNOWN
     Route: 065

REACTIONS (2)
  - DYSPNOEA [None]
  - PNEUMONIA [None]
